FAERS Safety Report 21352497 (Version 2)
Quarter: 2022Q4

REPORT INFORMATION
  Report Type: Report from Study
  Country: US (occurrence: US)
  Receive Date: 20220920
  Receipt Date: 20221104
  Transmission Date: 20230112
  Serious: Yes (Hospitalization, Other)
  Sender: FDA-Public Use
  Company Number: US-BEIGENE-BGN-2022-002452

PATIENT

DRUGS (3)
  1. BRUKINSA [Suspect]
     Active Substance: ZANUBRUTINIB
     Indication: Waldenstrom^s macroglobulinaemia
     Dosage: 160 MILLIGRAM, BID
     Route: 048
     Dates: start: 20210927
  2. BRUKINSA [Suspect]
     Active Substance: ZANUBRUTINIB
     Dosage: 160 MILLIGRAM, BID
     Route: 048
  3. BRUKINSA [Suspect]
     Active Substance: ZANUBRUTINIB
     Dosage: 160 MILLIGRAM, BID
     Route: 048

REACTIONS (12)
  - Femur fracture [Unknown]
  - Hip fracture [Unknown]
  - Skin abrasion [Unknown]
  - Fall [Unknown]
  - Feeling cold [Unknown]
  - Chills [Unknown]
  - Wound haemorrhage [Unknown]
  - Malaise [Unknown]
  - Contusion [Unknown]
  - Joint swelling [Unknown]
  - Gait inability [Unknown]
  - Product availability issue [Unknown]

NARRATIVE: CASE EVENT DATE: 20220527
